FAERS Safety Report 17631556 (Version 2)
Quarter: 2020Q2

REPORT INFORMATION
  Report Type: Spontaneous
  Country: US (occurrence: US)
  Receive Date: 20200406
  Receipt Date: 20200629
  Transmission Date: 20200713
  Serious: No
  Sender: FDA-Public Use
  Company Number: US-VERTEX PHARMACEUTICALS-2020-007441

PATIENT
  Age: 12 Year
  Sex: Male
  Weight: 53 kg

DRUGS (11)
  1. VITAMIN D2 [Concomitant]
     Active Substance: ERGOCALCIFEROL
  2. FLONASE ALLERGY RELIEF [Concomitant]
     Active Substance: FLUTICASONE PROPIONATE
  3. MIRALAX [Concomitant]
     Active Substance: POLYETHYLENE GLYCOL 3350
     Dosage: 17 G, POWDER PACK
  4. OMEPRAZOLE. [Concomitant]
     Active Substance: OMEPRAZOLE
  5. CREON [Concomitant]
     Active Substance: PANCRELIPASE AMYLASE\PANCRELIPASE LIPASE\PANCRELIPASE PROTEASE
     Dosage: 24-76-120K
  6. PROBIOTIC 10 [Concomitant]
     Active Substance: DIETARY SUPPLEMENT\PROBIOTICS
     Dosage: 10B CELL CAPSULE
  7. PULMOZYME [Concomitant]
     Active Substance: DORNASE ALFA
  8. ALBUTEROL SULFATE. [Concomitant]
     Active Substance: ALBUTEROL SULFATE
  9. TRIKAFTA [Suspect]
     Active Substance: ELEXACAFTOR\IVACAFTOR\TEZACAFTOR
     Indication: CYSTIC FIBROSIS
     Dosage: 2 TABS100 MG ELEXACAFTOR/ 50 MG TEZACAFTOR/ 75 MG IVACAFTOR AM, 1 TAB 150MG IVACAFTOR PM, BID
     Route: 048
     Dates: start: 20200323
  10. PULMICORT TURBUHALER [Concomitant]
     Active Substance: BUDESONIDE
     Dosage: 0.25 MG/2 ML, AMPUL-NEB
  11. HYPERSAL [Concomitant]
     Active Substance: SODIUM CHLORIDE
     Dosage: VIAL-NEB

REACTIONS (2)
  - Cough [Recovered/Resolved]
  - Oropharyngeal pain [Recovered/Resolved]

NARRATIVE: CASE EVENT DATE: 20200323
